FAERS Safety Report 7403687-4 (Version None)
Quarter: 2011Q2

REPORT INFORMATION
  Report Type: 
  Country: None (occurrence: None)
  Receive Date: 20110408
  Receipt Date: 20110330
  Transmission Date: 20111010
  Serious: Yes (Hospitalization, Other)
  Sender: FDA-Public Use
  Company Number: PHHY2011ES26304

PATIENT
  Age: 77 Year
  Sex: Male

DRUGS (3)
  1. SINTROM [Interacting]
     Indication: ATRIAL FIBRILLATION
     Route: 048
     Dates: start: 20100407, end: 20100603
  2. IBUPROFEN [Suspect]
     Dosage: 600 MG, DAILY
     Route: 048
     Dates: start: 20100524, end: 20100528
  3. ALLOPURINOL [Interacting]
     Dosage: 100 MG, DAILY
     Route: 048

REACTIONS (7)
  - GASTRIC HAEMORRHAGE [None]
  - MELAENA [None]
  - DIVERTICULUM GASTRIC [None]
  - BLOOD SODIUM DECREASED [None]
  - HAEMATOCRIT DECREASED [None]
  - DRUG INTERACTION [None]
  - INTERNATIONAL NORMALISED RATIO INCREASED [None]
